FAERS Safety Report 15495868 (Version 1)
Quarter: 2018Q4

REPORT INFORMATION
  Report Type: Report from Study
  Country: US (occurrence: US)
  Receive Date: 20181014
  Receipt Date: 20181014
  Transmission Date: 20190205
  Serious: No
  Sender: FDA-Public Use
  Company Number: PHEH2018US042517

PATIENT
  Age: 58 Year
  Sex: Female

DRUGS (1)
  1. SIMBRINZA [Suspect]
     Active Substance: BRIMONIDINE TARTRATE\BRINZOLAMIDE
     Indication: INTRAOCULAR PRESSURE INCREASED
     Route: 047

REACTIONS (6)
  - Drug hypersensitivity [Unknown]
  - Hypertension [Unknown]
  - Overweight [Unknown]
  - Ocular hyperaemia [Unknown]
  - Blood cholesterol increased [Unknown]
  - Product use issue [Unknown]

NARRATIVE: CASE EVENT DATE: 201807
